FAERS Safety Report 9558382 (Version 1)
Quarter: 2013Q3

REPORT INFORMATION
  Report Type: Spontaneous
  Country: RU (occurrence: RU)
  Receive Date: 20130926
  Receipt Date: 20130926
  Transmission Date: 20140515
  Serious: Yes (Other)
  Sender: FDA-Public Use
  Company Number: RU-GILEAD-2013-0084140

PATIENT
  Age: 89 Year
  Sex: Male

DRUGS (1)
  1. RANOLAZINE [Suspect]
     Indication: ANGINA PECTORIS
     Dosage: 500 MG, QD
     Route: 048
     Dates: start: 20130913, end: 20130913

REACTIONS (8)
  - Convulsion [Unknown]
  - Arrhythmia [Unknown]
  - Blood pressure decreased [Unknown]
  - Dyspnoea [Unknown]
  - Dysarthria [Unknown]
  - Peripheral coldness [Unknown]
  - Pallor [Unknown]
  - Body temperature increased [Unknown]
